FAERS Safety Report 17948144 (Version 2)
Quarter: 2020Q3

REPORT INFORMATION
  Report Type: Report from Study
  Country: IT (occurrence: IT)
  Receive Date: 20200626
  Receipt Date: 20200706
  Transmission Date: 20201103
  Serious: Yes (Hospitalization)
  Sender: FDA-Public Use
  Company Number: IT-MYLANLABS-2020M1058559

PATIENT
  Age: 58 Year
  Sex: Female
  Weight: 60 kg

DRUGS (10)
  1. ARIMIDEX [Suspect]
     Active Substance: ANASTROZOLE
     Indication: BREAST CANCER
     Dosage: 1 MILLIGRAM, QD, OD ONCE DAILY
     Route: 048
     Dates: start: 20190115
  2. PERTUZUMAB. [Suspect]
     Active Substance: PERTUZUMAB
     Indication: BREAST CANCER
     Dosage: 840 MILLIGRAM, Q3W MOST RECENT DOSE PRIOR TO THE EVENT: 23/AUG/2019, INFUSION SOLUTION
     Route: 042
     Dates: start: 20180816, end: 20180816
  3. PARACETAMOLO [Concomitant]
     Active Substance: ACETAMINOPHEN
     Dosage: UNK ONGOING = CHECKED
     Dates: start: 20190822
  4. CLORFENAMINA MALEATO [Concomitant]
     Dosage: UNK ONGOING = CHECKED
     Dates: start: 20190822
  5. AMLODIPINE                         /00972402/ [Concomitant]
     Active Substance: AMLODIPINE BESYLATE
     Dosage: UNK
     Dates: start: 20191114
  6. RAMIPRIL. [Concomitant]
     Active Substance: RAMIPRIL
     Indication: VENTRICULAR HYPOKINESIA
     Dosage: UNK ONGOING = CHECKED
     Dates: start: 20190423
  7. TRASTUZUMAB. [Suspect]
     Active Substance: TRASTUZUMAB
     Indication: BREAST CANCER
     Dosage: 480 MILLIGRAM, Q3W, MOST RECENT DOSE PRIOR TO THE EVENT: 22/AUG/2019, INFUSION SOLUTION
     Route: 042
     Dates: start: 20180817, end: 20180817
  8. TAXOTERE [Suspect]
     Active Substance: DOCETAXEL
     Indication: BREAST CANCER
     Dosage: 75 MILLIGRAM/SQ. METER, Q3W
     Route: 042
     Dates: start: 20180817, end: 20181206
  9. DIBASE [Concomitant]
     Active Substance: CHOLECALCIFEROL
     Dosage: ONGOING = CHECKED
     Dates: start: 20190115
  10. BISOPROLOLO [Concomitant]
     Active Substance: BISOPROLOL FUMARATE
     Dosage: UNK ONGOING = CHECKED
     Dates: start: 20191114

REACTIONS (1)
  - Jaundice cholestatic [Recovered/Resolved]

NARRATIVE: CASE EVENT DATE: 20200604
